FAERS Safety Report 17682450 (Version 1)
Quarter: 2020Q2

REPORT INFORMATION
  Report Type: Spontaneous
  Country: US (occurrence: US)
  Receive Date: 20200418
  Receipt Date: 20200418
  Transmission Date: 20200714
  Serious: Yes (Other)
  Sender: FDA-Public Use
  Company Number: US-PURDUE-USA-2020-0150167

PATIENT
  Sex: Female

DRUGS (1)
  1. HYDROCODONE BITARTRATE/ACETAMINOPHEN [Suspect]
     Active Substance: ACETAMINOPHEN\HYDROCODONE BITARTRATE
     Indication: PAIN
     Dosage: (10/ 325 MG) 1 TABLET, 2-3 TIMES DAILY
     Route: 048
     Dates: start: 2018

REACTIONS (2)
  - Malaise [Unknown]
  - Drug dependence [Unknown]
